FAERS Safety Report 15636057 (Version 2)
Quarter: 2019Q1

REPORT INFORMATION
  Report Type: Report from Study
  Country: CL (occurrence: CL)
  Receive Date: 20181120
  Receipt Date: 20190117
  Transmission Date: 20190417
  Serious: Yes (Other)
  Sender: FDA-Public Use
  Company Number: CL-UCBSA-2018050786

PATIENT
  Age: 53 Year
  Sex: Male

DRUGS (5)
  1. METHOTREXATE. [Concomitant]
     Active Substance: METHOTREXATE
     Indication: SPONDYLOARTHROPATHY
     Dosage: 10 MG, WEEKLY (QW)
     Route: 048
  2. OMEPRAZOLE. [Concomitant]
     Active Substance: OMEPRAZOLE
     Indication: PROPHYLAXIS
     Dosage: 20 MG, ONCE DAILY (QD)
     Route: 048
  3. LOSARTAN. [Concomitant]
     Active Substance: LOSARTAN
     Indication: HYPERTENSION
     Dosage: 50 MG, 2X/DAY (BID)
     Route: 048
  4. CERTOLIZUMAB PEGOL [Suspect]
     Active Substance: CERTOLIZUMAB PEGOL
     Indication: SPONDYLOARTHROPATHY
     Dosage: 400 MG, EV 4 WEEKS
     Route: 058
     Dates: start: 20151117
  5. AMLODIPINE [Concomitant]
     Active Substance: AMLODIPINE BESYLATE
     Indication: HYPERTENSION
     Dosage: 1 TABLET DAILY
     Route: 048

REACTIONS (4)
  - Urinary tract infection [Recovered/Resolved]
  - Conjunctivitis [Recovered/Resolved]
  - Arthralgia [Recovering/Resolving]
  - Asthenia [Recovering/Resolving]

NARRATIVE: CASE EVENT DATE: 20181031
